FAERS Safety Report 5824569-5 (Version None)
Quarter: 2008Q3

REPORT INFORMATION
  Report Type: 
  Country: None (occurrence: None)
  Receive Date: 20080728
  Receipt Date: 20080717
  Transmission Date: 20090109
  Serious: Yes (Hospitalization, Other)
  Sender: FDA-Public Use
  Company Number: JP-MERCK-0806USA01402

PATIENT
  Age: 74 Year
  Sex: Female
  Weight: 49 kg

DRUGS (10)
  1. FOSAMAX [Suspect]
     Indication: OSTEOPOROSIS
     Route: 048
     Dates: start: 20070307
  2. FOSAMAX [Suspect]
     Route: 048
     Dates: start: 20060126, end: 20060702
  3. FOSAMAX [Suspect]
     Route: 048
     Dates: start: 20050316, end: 20050626
  4. CHOLECALCIFEROL AND VITAMIN A [Concomitant]
     Indication: OSTEOPOROSIS
     Route: 065
     Dates: start: 20060703
  5. LIPITOR [Concomitant]
     Route: 048
     Dates: start: 20050316
  6. ASPIRIN [Concomitant]
     Route: 048
  7. MYSLEE [Concomitant]
     Route: 048
     Dates: start: 20050316
  8. AMOBAN [Concomitant]
     Route: 048
     Dates: start: 20050316
  9. CYANOCOBALAMIN [Concomitant]
     Route: 048
     Dates: start: 20050316
  10. JUVELA N [Concomitant]
     Route: 048
     Dates: start: 20050316

REACTIONS (5)
  - BONE SWELLING [None]
  - OSTEOMYELITIS [None]
  - OSTEONECROSIS [None]
  - PAIN [None]
  - RASH [None]
